FAERS Safety Report 9044446 (Version 1)
Quarter: 2013Q1

REPORT INFORMATION
  Report Type: Spontaneous
  Country: JP (occurrence: JP)
  Receive Date: 20130131
  Receipt Date: 20130131
  Transmission Date: 20140127
  Serious: Yes (Hospitalization)
  Sender: FDA-Public Use
  Company Number: JP-RANBAXY-2006US-04896

PATIENT
  Age: 71 Year
  Sex: Female

DRUGS (6)
  1. FENTANYL [Suspect]
     Indication: PAIN
     Dosage: 900 UG/DAY
     Route: 062
  2. MORPHINE [Suspect]
     Indication: PAIN
     Dosage: 120 MG/DAY
     Route: 048
  3. FENTANYL [Suspect]
     Indication: PAIN
     Dosage: 400 UG/DAY
     Route: 058
  4. FENTANYL [Suspect]
     Dosage: 600 UG/DAY
     Route: 058
  5. FENTANYL [Suspect]
     Dosage: 800 UG/DAY
     Route: 058
  6. MORPHINE [Suspect]
     Indication: PAIN
     Dosage: 20 MG/DAY
     Route: 058

REACTIONS (3)
  - Erythema [Recovered/Resolved]
  - Pruritus [Recovered/Resolved]
  - Application site erythema [Recovered/Resolved]
